FAERS Safety Report 7540104-8 (Version None)
Quarter: 2011Q2

REPORT INFORMATION
  Report Type: 
  Country: None (occurrence: None)
  Receive Date: 20110610
  Receipt Date: 20110606
  Transmission Date: 20111010
  Serious: Yes (Other)
  Sender: FDA-Public Use
  Company Number: US-PFIZER INC-HQWYE172222SEP04

PATIENT
  Sex: Female
  Weight: 86 kg

DRUGS (7)
  1. PREMPRO [Suspect]
     Indication: HORMONE REPLACEMENT THERAPY
     Dosage: 0.625/2.5MG
     Route: 048
     Dates: start: 19970201, end: 19990901
  2. PREMARIN [Suspect]
     Dosage: 0.9MG
     Route: 048
     Dates: start: 19910101, end: 19970201
  3. MEDROXYPROGESTERONE ACETATE [Suspect]
     Indication: HORMONE REPLACEMENT THERAPY
     Dosage: 5MG
     Route: 048
     Dates: start: 19950101, end: 19970201
  4. PROVERA [Suspect]
     Dosage: 10MG
     Route: 048
     Dates: start: 19910101, end: 19941201
  5. PREMPRO [Suspect]
     Dosage: 0.625/5MG
     Route: 048
     Dates: start: 19970201, end: 19990901
  6. PREMARIN [Suspect]
     Indication: HORMONE REPLACEMENT THERAPY
     Dosage: 0.625MG
     Route: 048
     Dates: start: 19910101, end: 19970201
  7. PROVERA [Suspect]
     Indication: HORMONE REPLACEMENT THERAPY
     Dosage: 5MG
     Route: 048
     Dates: start: 19910101, end: 19941201

REACTIONS (1)
  - BREAST CANCER METASTATIC [None]
